FAERS Safety Report 6622047-7 (Version None)
Quarter: 2010Q1

REPORT INFORMATION
  Report Type: 
  Country: None (occurrence: None)
  Receive Date: 20100304
  Receipt Date: 20100224
  Transmission Date: 20100710
  Serious: Yes (Death, Hospitalization, Other)
  Sender: FDA-Public Use
  Company Number: 2010SP012432

PATIENT
  Age: 84 Year
  Sex: Male

DRUGS (4)
  1. VASTAT FLAS         (MIRTAZAPINE /01293201/) (30 MG) [Suspect]
     Indication: DEPRESSION
     Dosage: 30 MG; QD; PO
     Route: 048
     Dates: start: 20080101, end: 20091026
  2. ESIDRIX [Suspect]
     Indication: HYPERTENSION
     Dosage: 25 MG; QD; PO
     Route: 048
     Dates: start: 20080101, end: 20091026
  3. COZAAR [Concomitant]
  4. IBUPROFEN [Concomitant]

REACTIONS (4)
  - CONFUSIONAL STATE [None]
  - DRUG INTERACTION [None]
  - INAPPROPRIATE ANTIDIURETIC HORMONE SECRETION [None]
  - PNEUMONIA [None]
